FAERS Safety Report 16639341 (Version 1)
Quarter: 2019Q3

REPORT INFORMATION
  Report Type: Report from Study
  Country: FR (occurrence: FR)
  Receive Date: 20190726
  Receipt Date: 20190726
  Transmission Date: 20191004
  Serious: Yes (Other)
  Sender: FDA-Public Use
  Company Number: FR-GILEAD-2019-0420035

PATIENT
  Age: 55 Year
  Sex: Male
  Weight: 66 kg

DRUGS (4)
  1. VIAGRA [Concomitant]
     Active Substance: SILDENAFIL CITRATE
  2. ACUPAN [Concomitant]
     Active Substance: NEFOPAM HYDROCHLORIDE
     Indication: MIGRAINE
     Dosage: UNK
     Dates: start: 20171121
  3. PARACETAMOL [Concomitant]
     Active Substance: ACETAMINOPHEN
  4. EMTRICITABINE/TENOFOVIR DISOPROXIL FUMARATE [Suspect]
     Active Substance: EMTRICITABINE\TENOFOVIR DISOPROXIL FUMARATE
     Indication: PROPHYLAXIS AGAINST HIV INFECTION
     Dosage: 1 DOSAGE FORM, QD
     Route: 065
     Dates: start: 20170427

REACTIONS (1)
  - Acute hepatitis C [Recovering/Resolving]

NARRATIVE: CASE EVENT DATE: 20171116
